FAERS Safety Report 7923858-8 (Version None)
Quarter: 2011Q4

REPORT INFORMATION
  Report Type: 
  Country: None (occurrence: None)
  Receive Date: 20111117
  Receipt Date: 20110209
  Transmission Date: 20120403
  Serious: No
  Sender: FDA-Public Use
  Company Number: US-AMGEN-USASP2011007760

PATIENT
  Age: 60 Year
  Sex: Female

DRUGS (1)
  1. ENBREL [Suspect]
     Indication: PSORIATIC ARTHROPATHY
     Dosage: 50 MG, QWK
     Dates: start: 20050101

REACTIONS (6)
  - PSORIATIC ARTHROPATHY [None]
  - HERPES ZOSTER [None]
  - ARTHRALGIA [None]
  - PERTUSSIS [None]
  - FATIGUE [None]
  - ASTHENIA [None]
